FAERS Safety Report 17830256 (Version 3)
Quarter: 2020Q3

REPORT INFORMATION
  Report Type: Report from Study
  Country: US (occurrence: US)
  Receive Date: 20200527
  Receipt Date: 20200901
  Transmission Date: 20201102
  Serious: Yes (Other)
  Sender: FDA-Public Use
  Company Number: US-ALLERGAN-2020333US

PATIENT
  Sex: Male
  Weight: 86.17 kg

DRUGS (4)
  1. LANTUS [Concomitant]
     Active Substance: INSULIN GLARGINE
     Dosage: 32 UNITS, QD
     Route: 030
     Dates: start: 2009
  2. BABY ASPIRIN [Concomitant]
     Active Substance: ASPIRIN
     Dosage: 81 MG, QD
     Route: 048
     Dates: start: 2015
  3. BIMATOPROST 0.015 MG INS (11048X) [Suspect]
     Active Substance: BIMATOPROST
     Indication: OPEN ANGLE GLAUCOMA
     Dosage: 15 ?G, SINGLE
     Route: 031
     Dates: start: 20200225, end: 20200527
  4. HUMALOG [Concomitant]
     Active Substance: INSULIN LISPRO
     Dosage: SLIDING SCALE, TID
     Route: 030
     Dates: start: 2009

REACTIONS (2)
  - Corneal endothelial cell loss [Recovering/Resolving]
  - Corneal oedema [Recovered/Resolved]

NARRATIVE: CASE EVENT DATE: 20200504
